FAERS Safety Report 21757901 (Version 1)
Quarter: 2022Q4

REPORT INFORMATION
  Report Type: Spontaneous
  Country: US (occurrence: None)
  Receive Date: 20221221
  Receipt Date: 20221221
  Transmission Date: 20230113
  Serious: Yes (Death, Other)
  Sender: FDA-Public Use
  Company Number: US-ROCHE-3189701

PATIENT
  Age: 57 Year
  Sex: Male
  Weight: 65.3 kg

DRUGS (1)
  1. ACTIVASE [Suspect]
     Active Substance: ALTEPLASE
     Indication: Cerebrovascular accident
     Dosage: UNKNOWN
     Route: 042
     Dates: start: 20220831, end: 20220831

REACTIONS (2)
  - Cerebral haemorrhage [Fatal]
  - Haemorrhagic transformation stroke [Unknown]

NARRATIVE: CASE EVENT DATE: 20220831
